FAERS Safety Report 4840117-0 (Version None)
Quarter: 2005Q4

REPORT INFORMATION
  Report Type: 
  Country: None (occurrence: None)
  Receive Date: 20051125
  Receipt Date: 20051109
  Transmission Date: 20060501
  Serious: Yes (Hospitalization, Other)
  Sender: FDA-Public Use
  Company Number: PHO-2005-040

PATIENT
  Age: 55 Year
  Sex: Male

DRUGS (8)
  1. PHOTOFRIN [Suspect]
     Indication: BLADDER CANCER
     Dosage: 150 MG IV
     Route: 042
     Dates: start: 20051102
  2. CLOPIDOGREL [Concomitant]
  3. FOSINOPRIL [Concomitant]
  4. SIMVASTATIN [Concomitant]
  5. RANITIDINE [Concomitant]
  6. PROMETHAZINE [Concomitant]
  7. OMEPRAZOLE [Concomitant]
  8. CODEINE PHOSPHATE AND ACETAMINOPHEN [Concomitant]

REACTIONS (11)
  - BLADDER SPASM [None]
  - CONDITION AGGRAVATED [None]
  - DYSURIA [None]
  - HAEMATURIA [None]
  - INCONTINENCE [None]
  - MICTURITION URGENCY [None]
  - NOCTURIA [None]
  - POLLAKIURIA [None]
  - URETHRAL PAIN [None]
  - URINARY RETENTION [None]
  - URINE OUTPUT DECREASED [None]
